FAERS Safety Report 8935021 (Version 2)
Quarter: 2012Q4

REPORT INFORMATION
  Report Type: Report from Study
  Country: DE (occurrence: DE)
  Receive Date: 20121129
  Receipt Date: 20121206
  Transmission Date: 20130627
  Serious: Yes (Hospitalization)
  Sender: FDA-Public Use
  Company Number: DE-BAXTER-2012BAX024907

PATIENT
  Age: 65 Year
  Sex: Female
  Weight: 98 kg

DRUGS (10)
  1. ENDOXAN 1G [Suspect]
     Indication: MALIGNANT BREAST NEOPLASM
     Route: 042
     Dates: start: 20120828
  2. PERTUZUMAB [Suspect]
     Indication: MALIGNANT BREAST NEOPLASM
     Route: 042
     Dates: start: 20121112
  3. TRASTUZUMAB [Suspect]
     Indication: MALIGNANT BREAST NEOPLASM
     Route: 042
     Dates: start: 20121112
  4. EPIRUBICIN [Suspect]
     Indication: MALIGNANT BREAST NEOPLASM
     Dosage: unit 200
     Route: 042
     Dates: start: 20120828
  5. FLUOROURACIL [Suspect]
     Indication: MALIGNANT BREAST NEOPLASM
     Dosage: unit 1000
     Route: 042
     Dates: start: 20120828
  6. DOCETAXEL [Suspect]
     Indication: MALIGNANT BREAST NEOPLASM
     Dosage: 200 units
     Route: 042
     Dates: start: 20121114
  7. PARACETAMOL [Concomitant]
     Indication: PREMEDICATION
     Route: 065
     Dates: start: 20121112, end: 20121112
  8. PARACETAMOL [Concomitant]
     Indication: INFUSION RELATED REACTION
  9. RANITIDINE [Concomitant]
     Indication: PREMEDICATION
     Route: 065
     Dates: start: 20121114, end: 20121114
  10. DEXAMETHASONE [Concomitant]
     Indication: PREMEDICATION
     Route: 065
     Dates: start: 20121114, end: 20121114

REACTIONS (2)
  - Infusion related reaction [Recovered/Resolved]
  - Diarrhoea [Unknown]
